FAERS Safety Report 8961017 (Version 2)
Quarter: 2013Q1

REPORT INFORMATION
  Report Type: Spontaneous
  Country: GB (occurrence: GB)
  Receive Date: 20121213
  Receipt Date: 20130108
  Transmission Date: 20140127
  Serious: Yes (Life-Threatening, Hospitalization, Other)
  Sender: FDA-Public Use
  Company Number: PHFR2012GB006345

PATIENT
  Age: 40 Year
  Sex: Male

DRUGS (4)
  1. CLOZARIL [Suspect]
     Indication: SCHIZOPHRENIA
     Dosage: 225 MG, UNK
     Route: 048
     Dates: start: 20121115, end: 20121201
  2. DIAZEPAM [Concomitant]
     Indication: AGITATION
     Dosage: 5 MG, BID
     Route: 048
     Dates: start: 20121109
  3. OMEPRAZOLE [Concomitant]
     Indication: GASTRITIS
     Dosage: 20 MG, UNK
     Route: 048
     Dates: start: 20121019
  4. MOVICOL [Concomitant]
     Indication: CONSTIPATION
     Dosage: UNK
     Route: 048
     Dates: start: 20121019

REACTIONS (6)
  - Pericardial effusion [Unknown]
  - Lower respiratory tract infection [Unknown]
  - Gastrointestinal disorder [Unknown]
  - Pericarditis [Recovered/Resolved with Sequelae]
  - Myocarditis [Recovered/Resolved with Sequelae]
  - C-reactive protein increased [Unknown]
